FAERS Safety Report 7201696-1 (Version None)
Quarter: 2010Q4

REPORT INFORMATION
  Report Type: 
  Country: None (occurrence: None)
  Receive Date: 20101229
  Receipt Date: 20101222
  Transmission Date: 20110411
  Serious: Yes (Life-Threatening)
  Sender: FDA-Public Use
  Company Number: IT-ROCHE-744111

PATIENT
  Sex: Male

DRUGS (10)
  1. VALIUM [Suspect]
     Indication: SEDATION
     Dosage: FREQUENCY: TOTAL
     Route: 042
     Dates: start: 20100914, end: 20100914
  2. CEFAMEZIN [Suspect]
     Dosage: FREQUENCY: TOTAL
     Route: 042
     Dates: start: 20100914, end: 20100914
  3. FENTANYL CITRATE [Suspect]
     Dosage: FREQUENCY: TOTAL
     Route: 042
     Dates: start: 20100914, end: 20100914
  4. NIMBEX [Suspect]
     Dosage: FREQUENCY: TOTAL
     Route: 042
     Dates: start: 20100914, end: 20100914
  5. ULTIVA [Suspect]
     Dosage: FREQUENCY: TOTAL
     Route: 042
     Dates: start: 20100914, end: 20100914
  6. ATROPINA [Suspect]
     Dosage: FREQUENCY: TOTAL
     Route: 042
     Dates: start: 20100914, end: 20100914
  7. EBRANTIL [Suspect]
     Indication: HYPERTENSION
     Dosage: FREQUENCY: TOTAL
     Route: 042
     Dates: start: 20100914, end: 20100914
  8. IBIFEN [Suspect]
     Indication: INFLAMMATORY PAIN
     Dosage: FREQUENCY: TOTAL
     Route: 042
     Dates: start: 20100914, end: 20100914
  9. ZANTAC [Suspect]
     Dosage: FREQUENCY: TOTAL
     Route: 042
     Dates: start: 20100914, end: 20100914
  10. NEOSTIGMINE [Suspect]
     Dosage: FREQUENCY: TOTAL
     Route: 042
     Dates: start: 20100914, end: 20100914

REACTIONS (1)
  - LARYNGEAL OEDEMA [None]
